FAERS Safety Report 11857047 (Version 9)
Quarter: 2016Q3

REPORT INFORMATION
  Report Type: Report from Study
  Country: US (occurrence: US)
  Receive Date: 20151221
  Receipt Date: 20160801
  Transmission Date: 20161109
  Serious: Yes (Hospitalization, Other)
  Sender: FDA-Public Use
  Company Number: US-JNJFOC-20151116008

PATIENT
  Sex: Male

DRUGS (7)
  1. CITALOPRAM HYDROBROMIDE. [Concomitant]
     Active Substance: CITALOPRAM HYDROBROMIDE
  2. METOPROLOL. [Concomitant]
     Active Substance: METOPROLOL
  3. ASPIRIN. [Concomitant]
     Active Substance: ASPIRIN
  4. IMBRUVICA [Suspect]
     Active Substance: IBRUTINIB
     Indication: CHRONIC LYMPHOCYTIC LEUKAEMIA
     Route: 048
  5. IMBRUVICA [Suspect]
     Active Substance: IBRUTINIB
     Indication: CHRONIC LYMPHOCYTIC LEUKAEMIA
     Route: 048
     Dates: start: 20151118
  6. LOVASTATIN. [Concomitant]
     Active Substance: LOVASTATIN
  7. NOVOLIN N [Concomitant]
     Active Substance: INSULIN HUMAN

REACTIONS (19)
  - Anaemia [Recovering/Resolving]
  - Contusion [Not Recovered/Not Resolved]
  - Joint swelling [Recovered/Resolved]
  - Night sweats [Unknown]
  - Pain in extremity [Recovering/Resolving]
  - Weight decreased [Unknown]
  - Acrochordon [Not Recovered/Not Resolved]
  - Bone pain [Not Recovered/Not Resolved]
  - Myalgia [Not Recovered/Not Resolved]
  - White blood cell count decreased [Recovered/Resolved]
  - Speech disorder [None]
  - Arthralgia [Not Recovered/Not Resolved]
  - Peripheral swelling [Recovered/Resolved]
  - Cerebral haematoma [None]
  - Rash pruritic [Unknown]
  - Urinary tract stoma complication [Unknown]
  - Pyrexia [Unknown]
  - Staphylococcal infection [Unknown]
  - Device related infection [None]

NARRATIVE: CASE EVENT DATE: 2015
